FAERS Safety Report 14176088 (Version 1)
Quarter: 2017Q4

REPORT INFORMATION
  Report Type: Spontaneous
  Country: US (occurrence: US)
  Receive Date: 20171109
  Receipt Date: 20171109
  Transmission Date: 20180321
  Serious: No
  Sender: FDA-Public Use
  Company Number: None

PATIENT
  Age: 69 Year
  Sex: Male
  Weight: 132.75 kg

DRUGS (10)
  1. ATORVASTATIN [Concomitant]
     Active Substance: ATORVASTATIN
  2. WARFARIN [Concomitant]
     Active Substance: WARFARIN
  3. MAGNESIIUM [Concomitant]
  4. VITAMIN/MINERAL SUPPLEMENT WITH MAGNESIUM CARBONATE, CALCIUM CARBONATE AND FOLIC ACID [Concomitant]
     Active Substance: CALCIUM CARBONATE\FOLIC ACID\MAGNESIUM CARBONATE
  5. TRAMADOL ACETAMINOPHN 37.5-325 [Suspect]
     Active Substance: ACETAMINOPHEN\TRAMADOL HYDROCHLORIDE
     Indication: PAIN
     Dosage: ?          QUANTITY:2 CAPSULE(S);?
     Route: 048
     Dates: start: 20171021, end: 20171101
  6. OMAPRASOLE [Concomitant]
  7. AMARYL [Concomitant]
     Active Substance: GLIMEPIRIDE
  8. AMEODERONE ASPRIN [Concomitant]
  9. COREG [Concomitant]
     Active Substance: CARVEDILOL
  10. LOSARTAN. [Concomitant]
     Active Substance: LOSARTAN

REACTIONS (3)
  - Abdominal pain upper [None]
  - Drug ineffective [None]
  - Malaise [None]

NARRATIVE: CASE EVENT DATE: 20171021
